FAERS Safety Report 8180054-X (Version None)
Quarter: 2012Q1

REPORT INFORMATION
  Report Type: 
  Country: None (occurrence: None)
  Receive Date: 20120302
  Receipt Date: 20120302
  Transmission Date: 20120608
  Serious: Yes (Hospitalization, Other)
  Sender: FDA-Public Use
  Company Number: None

PATIENT
  Age: 18 Year
  Sex: Male
  Weight: 86.182 kg

DRUGS (2)
  1. LAMICTAL [Concomitant]
     Dosage: 75
  2. LAMICTAL [Suspect]
     Indication: DEPRESSION
     Dosage: 50.0 MG
     Dates: start: 20090505, end: 20101201

REACTIONS (7)
  - WEIGHT DECREASED [None]
  - ANXIETY [None]
  - TREMOR [None]
  - HYPERHIDROSIS [None]
  - INSOMNIA [None]
  - PALPITATIONS [None]
  - HEADACHE [None]
